FAERS Safety Report 10944926 (Version 1)
Quarter: 2015Q1

REPORT INFORMATION
  Report Type: Spontaneous
  Country: US (occurrence: None)
  Receive Date: 20150319
  Receipt Date: 20150319
  Transmission Date: 20150721
  Serious: Yes (Other)
  Sender: FDA-Public Use
  Company Number: 2770930

PATIENT
  Age: 61 Year
  Sex: Female
  Weight: 71.31 kg

DRUGS (5)
  1. FLUOROURACIL. [Concomitant]
     Active Substance: FLUOROURACIL
  2. DEXAMETHASONE. [Concomitant]
     Active Substance: DEXAMETHASONE
  3. OXALIPLATIN INJECTION (OXALIPLATIN) [Suspect]
     Active Substance: OXALIPLATIN
     Indication: CHEMOTHERAPY
     Dosage: 145 MG MILLIGRAM(S), 1 WEEK, INTRAVENOUS (NOT OTHERWISE SPECIFIED)
     Route: 042
     Dates: start: 20150121, end: 20150204
  4. LEUCOVORIN [Concomitant]
     Active Substance: LEUCOVORIN
  5. PALONOSETRON [Concomitant]
     Active Substance: PALONOSETRON

REACTIONS (4)
  - Product quality issue [None]
  - Vomiting [None]
  - Dyspnoea [None]
  - Nausea [None]

NARRATIVE: CASE EVENT DATE: 20150204
